FAERS Safety Report 13023516 (Version 1)
Quarter: 2016Q4

REPORT INFORMATION
  Report Type: Spontaneous
  Country: US (occurrence: US)
  Receive Date: 20161212
  Receipt Date: 20161212
  Transmission Date: 20170207
  Serious: Yes (Death)
  Sender: FDA-Public Use
  Company Number: None

PATIENT
  Age: 70 Year
  Sex: Male

DRUGS (1)
  1. BOTOX [Suspect]
     Active Substance: ONABOTULINUMTOXINA
     Indication: INTRACRANIAL ANEURYSM
     Dosage: ?          OTHER FREQUENCY:500 UNITS;?
     Route: 030
     Dates: start: 20160301

REACTIONS (1)
  - Death [None]

NARRATIVE: CASE EVENT DATE: 20160930
